FAERS Safety Report 7395360-6 (Version None)
Quarter: 2011Q2

REPORT INFORMATION
  Report Type: 
  Country: None (occurrence: None)
  Receive Date: 20110405
  Receipt Date: 20110331
  Transmission Date: 20111010
  Serious: Yes (Other)
  Sender: FDA-Public Use
  Company Number: DE-ABBOTT-11P-062-0711585-00

PATIENT
  Sex: Female
  Weight: 78 kg

DRUGS (2)
  1. FENESTIL [Concomitant]
     Indication: PRODUCT USED FOR UNKNOWN INDICATION
  2. HUMIRA [Suspect]
     Indication: POLYARTHRITIS

REACTIONS (5)
  - TENDON DISORDER [None]
  - TENOSYNOVITIS [None]
  - DERMATITIS BULLOUS [None]
  - LIVER FUNCTION TEST ABNORMAL [None]
  - HYPERSENSITIVITY [None]
